FAERS Safety Report 6557847-5 (Version None)
Quarter: 2010Q1

REPORT INFORMATION
  Report Type: 
  Country: None (occurrence: None)
  Receive Date: 20100129
  Receipt Date: 20091006
  Transmission Date: 20100710
  Serious: No
  Sender: FDA-Public Use
  Company Number: US-BAUSCH-2009BL005098

PATIENT
  Age: 81 Year
  Sex: Female

DRUGS (2)
  1. TOBRAMYCIN AND DEXAMETHASONE OPHTHALMIC SUSPENSION USP 0.3%/0.1% [Suspect]
     Indication: EYE IRRITATION
     Route: 047
     Dates: start: 20091006
  2. TOBRAMYCIN AND DEXAMETHASONE OPHTHALMIC SUSPENSION USP 0.3%/0.1% [Suspect]
     Indication: OCULAR HYPERAEMIA
     Route: 047
     Dates: start: 20091006

REACTIONS (2)
  - ABDOMINAL DISCOMFORT [None]
  - THROAT IRRITATION [None]
